FAERS Safety Report 6116846-8 (Version None)
Quarter: 2009Q1

REPORT INFORMATION
  Report Type: 
  Country: None (occurrence: None)
  Receive Date: 20090314
  Receipt Date: 20081229
  Transmission Date: 20090719
  Serious: No
  Sender: FDA-Public Use
  Company Number: US-ABBOTT-08P-163-0495239-00

PATIENT
  Sex: Female
  Weight: 95.34 kg

DRUGS (4)
  1. HUMIRA [Suspect]
     Indication: CROHN'S DISEASE
     Route: 058
     Dates: start: 20080101, end: 20081219
  2. HUMIRA [Suspect]
     Route: 058
  3. CHOLESTYRAMINE [Concomitant]
     Indication: CROHN'S DISEASE
     Dosage: 1 SCOOP IN WATER (QD)
     Route: 048
  4. VITAMINS [Concomitant]
     Indication: VITAMIN SUPPLEMENTATION
     Route: 048

REACTIONS (5)
  - COUGH [None]
  - HEADACHE [None]
  - NASOPHARYNGITIS [None]
  - PNEUMONIA PRIMARY ATYPICAL [None]
  - SINUS CONGESTION [None]
